FAERS Safety Report 7542245-8 (Version None)
Quarter: 2011Q2

REPORT INFORMATION
  Report Type: 
  Country: None (occurrence: None)
  Receive Date: 20110613
  Receipt Date: 20110610
  Transmission Date: 20111010
  Serious: Yes (Other)
  Sender: FDA-Public Use
  Company Number: US-PFIZER INC-2011127719

PATIENT
  Sex: Female

DRUGS (1)
  1. XANAX [Suspect]
     Indication: ANXIETY
     Dosage: 0.125 MG, 3X/DAY
     Route: 048
     Dates: start: 19890101

REACTIONS (3)
  - NERVOUSNESS [None]
  - CATARACT [None]
  - DRUG INEFFECTIVE [None]
